FAERS Safety Report 8999774 (Version 1)
Quarter: 2013Q1

REPORT INFORMATION
  Report Type: Spontaneous
  Country: GB (occurrence: GB)
  Receive Date: 20130102
  Receipt Date: 20130102
  Transmission Date: 20140127
  Serious: Yes (Other)
  Sender: FDA-Public Use
  Company Number: GB-ASTRAZENECA-2012SE95456

PATIENT
  Age: 27759 Day
  Sex: Male

DRUGS (4)
  1. ATENOLOL [Suspect]
     Indication: HYPERTENSION
     Route: 048
  2. ACE INHIBITORS NOS [Concomitant]
  3. CLOPIDOGREL [Concomitant]
  4. DIURETIC [Concomitant]

REACTIONS (2)
  - Central nervous system lesion [Recovering/Resolving]
  - Cerebrovascular accident [Recovering/Resolving]
